FAERS Safety Report 19429781 (Version 1)
Quarter: 2021Q2

REPORT INFORMATION
  Report Type: Spontaneous
  Country: US (occurrence: US)
  Receive Date: 20210617
  Receipt Date: 20210617
  Transmission Date: 20210717
  Serious: No
  Sender: FDA-Public Use
  Company Number: US-AMGEN-USASP2021090963

PATIENT
  Sex: Female

DRUGS (1)
  1. PROLIA [Suspect]
     Active Substance: DENOSUMAB
     Indication: OSTEOPOROSIS
     Dosage: 60 MILLIGRAM
     Route: 065
     Dates: start: 2021

REACTIONS (6)
  - Swelling face [Unknown]
  - Jaw disorder [Not Recovered/Not Resolved]
  - Oral mucosal discolouration [Unknown]
  - Pain in jaw [Not Recovered/Not Resolved]
  - Arthralgia [Recovered/Resolved]
  - Loose tooth [Not Recovered/Not Resolved]
